FAERS Safety Report 10514333 (Version 2)
Quarter: 2014Q4

REPORT INFORMATION
  Report Type: Spontaneous
  Country: IL (occurrence: IL)
  Receive Date: 20141013
  Receipt Date: 20141114
  Transmission Date: 20150528
  Serious: Yes (Death, Other)
  Sender: FDA-Public Use
  Company Number: US-PFIZER INC-2014276505

PATIENT
  Age: 76 Year
  Sex: Male

DRUGS (9)
  1. METICORTEN [Concomitant]
     Active Substance: PREDNISONE
     Dosage: 10 MG, DAILY
  2. CHLOROSAL [Concomitant]
     Dosage: 0.5, TWICE A DAY 5 TIMES WEEKLY
  3. DURABOLIN [Concomitant]
     Active Substance: NANDROLONE PHENPROPIONATE
     Dosage: 50 MG, WEEKLY
  4. RESERPINE. [Concomitant]
     Active Substance: RESERPINE
     Dosage: 0.5 MG, DAILY
  5. METHYLPREDNISOLONE. [Suspect]
     Active Substance: METHYLPREDNISOLONE
     Indication: PEMPHIGUS
     Dosage: UNK
  6. PREDNISOLONE. [Suspect]
     Active Substance: PREDNISOLONE
     Indication: DERMATITIS BULLOUS
     Dosage: 30 MG, DAILY
  7. ACTH [Concomitant]
     Active Substance: CORTICOTROPIN
     Dosage: 20 IU, 3 TIMES A WEEK
     Route: 030
  8. KCL [Concomitant]
     Active Substance: POTASSIUM CHLORIDE
     Dosage: 2 MG, DAILY
  9. ASCORBIC ACID. [Concomitant]
     Active Substance: ASCORBIC ACID
     Dosage: 500 MG, DAILY

REACTIONS (2)
  - Kaposi^s sarcoma [Fatal]
  - Gastrointestinal haemorrhage [Fatal]
